FAERS Safety Report 14348470 (Version 4)
Quarter: 2018Q1

REPORT INFORMATION
  Report Type: Spontaneous
  Country: US (occurrence: US)
  Receive Date: 20180103
  Receipt Date: 20180110
  Transmission Date: 20180509
  Serious: No
  Sender: FDA-Public Use
  Company Number: US-BIOGEN-2017BI00503430

PATIENT
  Age: 16 Year
  Sex: Female

DRUGS (4)
  1. AVONEX [Suspect]
     Active Substance: INTERFERON BETA-1A
     Dosage: 1/4 DOSE WEEK 1, 1/2 DOSE WEEK 2, 3/4 DOSE WEEK 3, FULL DOSE WEEK 4
     Route: 030
  2. AVONEX [Suspect]
     Active Substance: INTERFERON BETA-1A
     Dosage: 1/4 DOSE WEEK 1, 1/2 DOSE WEEK 2, 3/4 DOSE WEEK 3, FULL DOSE WEEK 4
     Route: 030
  3. AVONEX [Suspect]
     Active Substance: INTERFERON BETA-1A
     Dosage: 1/4 DOSE WEEK 1, 1/2 DOSE WEEK 2, 3/4 DOSE WEEK 3, FULL DOSE WEEK 4
     Route: 030
  4. AVONEX [Suspect]
     Active Substance: INTERFERON BETA-1A
     Indication: MULTIPLE SCLEROSIS
     Dosage: 1/4 DOSE WEEK 1, 1/2 DOSE WEEK 2, 3/4 DOSE WEEK 3, FULL DOSE WEEK 4
     Route: 030
     Dates: start: 20171227

REACTIONS (6)
  - Skin exfoliation [Not Recovered/Not Resolved]
  - Migraine [Not Recovered/Not Resolved]
  - Headache [Recovered/Resolved]
  - Drug administered to patient of inappropriate age [Not Recovered/Not Resolved]
  - Influenza like illness [Recovered/Resolved]
  - Pain [Recovered/Resolved]

NARRATIVE: CASE EVENT DATE: 20171227
